FAERS Safety Report 20456673 (Version 1)
Quarter: 2022Q1

REPORT INFORMATION
  Report Type: Spontaneous
  Country: FR (occurrence: FR)
  Receive Date: 20220210
  Receipt Date: 20220210
  Transmission Date: 20220423
  Serious: Yes (Other)
  Sender: FDA-Public Use
  Company Number: FR-BRISTOL-MYERS SQUIBB COMPANY-BMS-2021-123663

PATIENT
  Sex: Female

DRUGS (9)
  1. PREDNISOLONE [Suspect]
     Active Substance: PREDNISOLONE
     Indication: Product used for unknown indication
     Dosage: UNK
     Dates: start: 20220105
  2. PREDNISOLONE [Suspect]
     Active Substance: PREDNISOLONE
     Dosage: UNK
     Route: 065
     Dates: start: 20211217, end: 20211230
  3. HYDROCORTISONE [Suspect]
     Active Substance: HYDROCORTISONE
     Indication: Diarrhoea
     Dosage: 10 MILLIGRAM
     Dates: start: 20220113
  4. HYDROCORTISONE [Suspect]
     Active Substance: HYDROCORTISONE
     Indication: Adrenal insufficiency
     Dosage: 40 MILLIGRAM, QD
     Route: 065
     Dates: start: 20211231, end: 20220105
  5. IPILIMUMAB [Suspect]
     Active Substance: IPILIMUMAB
     Indication: Renal cell carcinoma
     Dosage: 1 MILLIGRAM/KILOGRAM, Q3WK
     Dates: start: 20211022
  6. NIVOLUMAB [Suspect]
     Active Substance: NIVOLUMAB
     Indication: Renal cell carcinoma
     Dosage: 3 MILLIGRAM/KILOGRAM, Q3WK
     Dates: start: 20211022
  7. LOPERAMIDE [Concomitant]
     Active Substance: LOPERAMIDE
     Indication: Product used for unknown indication
     Dosage: UNK
     Dates: start: 20211202
  8. PREDNISONE [Concomitant]
     Active Substance: PREDNISONE
     Indication: Product used for unknown indication
     Dosage: UNK
  9. MONTMORILLONITE [Concomitant]
     Active Substance: MONTMORILLONITE
     Indication: Product used for unknown indication
     Dosage: UNK
     Dates: start: 20211202

REACTIONS (7)
  - Adrenal insufficiency [Not Recovered/Not Resolved]
  - Mucosal inflammation [Not Recovered/Not Resolved]
  - Pyrexia [Not Recovered/Not Resolved]
  - Vomiting [Not Recovered/Not Resolved]
  - Diarrhoea [Recovered/Resolved]
  - Nausea [Not Recovered/Not Resolved]
  - Oedema peripheral [Recovered/Resolved]

NARRATIVE: CASE EVENT DATE: 20211115
